FAERS Safety Report 14407681 (Version 6)
Quarter: 2019Q2

REPORT INFORMATION
  Report Type: Spontaneous
  Country: US (occurrence: US)
  Receive Date: 20180118
  Receipt Date: 20190425
  Transmission Date: 20190711
  Serious: Yes (Hospitalization, Other)
  Sender: FDA-Public Use
  Company Number: US-ACTELION-A-NJ2018-165961

PATIENT
  Age: 59 Year
  Sex: Female

DRUGS (21)
  1. OPSUMIT [Suspect]
     Active Substance: MACITENTAN
     Indication: PULMONARY ARTERIAL HYPERTENSION
     Dosage: 10 MG, QD
     Route: 048
     Dates: start: 20151013
  2. ATORVASTATIN [Concomitant]
     Active Substance: ATORVASTATIN
  3. NEURONTIN [Concomitant]
     Active Substance: GABAPENTIN
  4. SILDENAFIL CITRATE. [Concomitant]
     Active Substance: SILDENAFIL CITRATE
  5. ASPIRIN. [Concomitant]
     Active Substance: ASPIRIN
  6. HCTZ [Concomitant]
     Active Substance: HYDROCHLOROTHIAZIDE
  7. NEXIUM [Concomitant]
     Active Substance: ESOMEPRAZOLE MAGNESIUM
  8. VITAMIN D2 [Concomitant]
     Active Substance: ERGOCALCIFEROL
  9. TYVASO [Suspect]
     Active Substance: TREPROSTINIL
     Indication: PULMONARY ARTERIAL HYPERTENSION
     Dosage: 18-54 MCG (3-9 BREATHS), QID
     Route: 055
     Dates: start: 20171208
  10. ATENOLOL. [Concomitant]
     Active Substance: ATENOLOL
  11. DULOXETINE. [Concomitant]
     Active Substance: DULOXETINE
  12. FUROSEMIDE. [Concomitant]
     Active Substance: FUROSEMIDE
  13. PROCARDIA [Concomitant]
     Active Substance: NIFEDIPINE
  14. STOOL SOFTENER (DOCUSATE) [Concomitant]
     Active Substance: DOCUSATE
  15. AMLODIPINE [Suspect]
     Active Substance: AMLODIPINE BESYLATE
     Indication: PRODUCT USED FOR UNKNOWN INDICATION
     Route: 065
  16. CALCITROL [Concomitant]
     Active Substance: CALCITRIOL
  17. LEFLUNOMIDE. [Concomitant]
     Active Substance: LEFLUNOMIDE
  18. PENTOXYL [Concomitant]
     Active Substance: PENTOXIFYLLINE
  19. SYNTHROID [Concomitant]
     Active Substance: LEVOTHYROXINE SODIUM
  20. ARPIZOL [Concomitant]
  21. FISH OIL [Concomitant]
     Active Substance: FISH OIL

REACTIONS (4)
  - Fluid retention [Unknown]
  - Spinal operation [Recovered/Resolved]
  - Pericardial effusion [Recovering/Resolving]
  - Arteriovenous fistula [Recovered/Resolved]

NARRATIVE: CASE EVENT DATE: 20171220
